FAERS Safety Report 11908156 (Version 3)
Quarter: 2016Q2

REPORT INFORMATION
  Report Type: Spontaneous
  Country: US (occurrence: US)
  Receive Date: 20160111
  Receipt Date: 20160415
  Transmission Date: 20160815
  Serious: No
  Sender: FDA-Public Use
  Company Number: US-ELI_LILLY_AND_COMPANY-US201512008496

PATIENT
  Age: 43 Year
  Sex: Male
  Weight: 72.56 kg

DRUGS (5)
  1. ADCIRCA [Suspect]
     Active Substance: TADALAFIL
     Indication: PRODUCT USED FOR UNKNOWN INDICATION
     Route: 065
  2. REMODULIN [Suspect]
     Active Substance: TREPROSTINIL
     Indication: PULMONARY HYPERTENSION
     Dosage: UNK UNK, UNKNOWN
     Route: 058
     Dates: start: 20150309
  3. COUMADIN [Concomitant]
     Active Substance: WARFARIN SODIUM
  4. AMBRISENTAN [Suspect]
     Active Substance: AMBRISENTAN
     Indication: PULMONARY ARTERIAL HYPERTENSION
     Dosage: 10 MG, QD
     Route: 065
     Dates: start: 20141210
  5. LETAIRIS [Concomitant]
     Active Substance: AMBRISENTAN

REACTIONS (9)
  - Chills [Unknown]
  - Infection [Unknown]
  - Injection site mass [Unknown]
  - Injection site swelling [Unknown]
  - Injection site discharge [Unknown]
  - Nasopharyngitis [Unknown]
  - Injection site warmth [Unknown]
  - Vomiting [Unknown]
  - Fatigue [Unknown]

NARRATIVE: CASE EVENT DATE: 201512
